FAERS Safety Report 5911061-2 (Version None)
Quarter: 2008Q4

REPORT INFORMATION
  Report Type: 
  Country: None (occurrence: None)
  Receive Date: 20081007
  Receipt Date: 20071107
  Transmission Date: 20090506
  Serious: No
  Sender: FDA-Public Use
  Company Number: US-BRISTOL-MYERS SQUIBB COMPANY-13752027

PATIENT
  Age: 66 Year
  Sex: Female
  Weight: 116 kg

DRUGS (3)
  1. AVALIDE [Suspect]
     Dates: start: 20050104, end: 20070225
  2. AVAPRO [Suspect]
     Dates: start: 20070303
  3. TENORMIN [Concomitant]

REACTIONS (14)
  - EAR PAIN [None]
  - EYE PRURITUS [None]
  - HEADACHE [None]
  - NAUSEA [None]
  - POLLAKIURIA [None]
  - PRURITUS [None]
  - RASH [None]
  - RESPIRATORY TRACT CONGESTION [None]
  - SLEEP DISORDER [None]
  - SWELLING [None]
  - URTICARIA [None]
  - VERTIGO [None]
  - VISUAL IMPAIRMENT [None]
  - WEIGHT INCREASED [None]
